FAERS Safety Report 20237456 (Version 1)
Quarter: 2021Q4

REPORT INFORMATION
  Report Type: Report from Study
  Country: US (occurrence: US)
  Receive Date: 20211228
  Receipt Date: 20211228
  Transmission Date: 20220303
  Serious: Yes (Hospitalization)
  Sender: FDA-Public Use
  Company Number: US-Blueprint Medicines Corporation-CS-US-2020-000767

PATIENT
  Age: 66 Year
  Sex: Male
  Weight: 84.3 kg

DRUGS (10)
  1. PRALSETINIB [Suspect]
     Active Substance: PRALSETINIB
     Indication: Apocrine breast carcinoma
     Dosage: LAST DOSE OF PRALSETINIB PRIOR TO THE SAE ONSET WAS ON 18/MAY/2020
     Route: 048
     Dates: start: 20200303, end: 20200519
  2. AMOXICILLIN [Concomitant]
     Active Substance: AMOXICILLIN
     Indication: Pharyngitis streptococcal
     Route: 048
     Dates: start: 20200401, end: 20200405
  3. POTASSIUM PHOSPHATES [Concomitant]
     Active Substance: POTASSIUM PHOSPHATE, DIBASIC\POTASSIUM PHOSPHATE, MONOBASIC
     Indication: Hypophosphataemia
     Route: 042
     Dates: start: 20200417, end: 20200417
  4. SODIUM CHLORIDE [Concomitant]
     Active Substance: SODIUM CHLORIDE
     Indication: Blood creatinine increased
     Route: 042
     Dates: start: 20200324, end: 20200324
  5. SYNTHROID [Concomitant]
     Active Substance: LEVOTHYROXINE SODIUM
     Indication: Hypothyroidism
     Route: 048
     Dates: start: 201907
  6. COZAAR [Concomitant]
     Active Substance: LOSARTAN POTASSIUM
     Indication: Hypertension
     Route: 048
     Dates: start: 2010
  7. TOPROL XL [Concomitant]
     Active Substance: METOPROLOL SUCCINATE
     Indication: Hypertension
     Route: 048
     Dates: start: 2010
  8. TYLENOL [Concomitant]
     Active Substance: ACETAMINOPHEN
     Indication: Arthralgia
     Route: 048
     Dates: start: 2015
  9. CRESTOR [Concomitant]
     Active Substance: ROSUVASTATIN CALCIUM
     Indication: Blood cholesterol increased
     Route: 048
     Dates: start: 2010
  10. SYSTANE (HYPROMELLOSE 2910 (4000 MPA.S)) [Concomitant]
     Active Substance: HYPROMELLOSE 2910 (4000 MPA.S)
     Indication: Eye irritation
     Dosage: 1-2 DROPS
     Route: 065
     Dates: start: 201901

REACTIONS (1)
  - Acute kidney injury [Recovered/Resolved]

NARRATIVE: CASE EVENT DATE: 20200519
